FAERS Safety Report 22371539 (Version 1)
Quarter: 2023Q2

REPORT INFORMATION
  Report Type: Spontaneous
  Country: SE (occurrence: SE)
  Receive Date: 20230526
  Receipt Date: 20230526
  Transmission Date: 20230722
  Serious: Yes (Other)
  Sender: FDA-Public Use
  Company Number: None

PATIENT
  Sex: Female
  Weight: 68 kg

DRUGS (19)
  1. CLOPIDOGREL [Suspect]
     Active Substance: CLOPIDOGREL BISULFATE
     Indication: Cerebrovascular accident
     Dosage: STRENGTH:83.5 MG AND 75 MG, 1X1
     Dates: start: 20190409, end: 20230424
  2. OXIS [Concomitant]
     Active Substance: FORMOTEROL FUMARATE
     Dosage: STRENGTH: 3.69 UG, 1 X 2 VB
     Dates: start: 20160916
  3. UREA [Concomitant]
     Active Substance: UREA
     Dosage: STRENGTH:50, 1 APPLICATION AS REQUIRED
     Dates: start: 20220516
  4. ZOPICLONE [Concomitant]
     Active Substance: ZOPICLONE
     Dosage: STRENGTH: 7.5 MG
     Dates: start: 20160916
  5. ALENDRONAT [Concomitant]
     Active Substance: ALENDRONATE SODIUM
     Dosage: WEEKLY TABLET
     Dates: start: 20181023
  6. LOSARTAN [Concomitant]
     Active Substance: LOSARTAN
     Dosage: STRENGTH:100 MG AND 91.74 MG
     Dates: start: 20190411
  7. PREDNISOLONE [Concomitant]
     Active Substance: PREDNISOLONE
     Dosage: STRENGTH: 5 MG
     Dates: start: 20190107
  8. ELIQUIS [Concomitant]
     Active Substance: APIXABAN
     Dosage: STRENGTH: 2.5 MG
     Dates: start: 202208
  9. ATORVASTATIN [Concomitant]
     Active Substance: ATORVASTATIN
     Dosage: STRENGTH:80 MG AND 86.751 MG
     Dates: start: 20190410
  10. ACETAMINOPHEN [Concomitant]
     Active Substance: ACETAMINOPHEN
     Dosage: STRENGTH:500 MG
     Dates: start: 20160917
  11. CARBOMER [Concomitant]
     Active Substance: CARBOMER
     Dosage: 1-2 DROPS VB
     Dates: start: 20160916
  12. AMLODIPINE [Concomitant]
     Active Substance: AMLODIPINE BESYLATE
     Dosage: STRENGTH:5 MG AND 6.935 MG
     Dates: start: 20180810
  13. PULMICORT TURBUHALER [Concomitant]
     Active Substance: BUDESONIDE
     Dosage: STRENGTH:200 UG, 1-2 INHALATIONS 2 TIMES/DAY
     Dates: start: 20160916
  14. SODIUM PICOSULFATE [Concomitant]
     Active Substance: SODIUM PICOSULFATE
     Dosage: STRENGTH:7.5 AND 7.23 10-20 DROPS AS REQUIRED
     Dates: start: 20220722
  15. MOVICOL [Concomitant]
     Active Substance: POLYETHYLENE GLYCOL 3350\POTASSIUM CHLORIDE\SODIUM BICARBONATE\SODIUM CHLORIDE
     Dosage: 1 SACHET AS REQUIRED, MAX 3 SACHET/DAY
     Dates: start: 20220722
  16. OXYCODONE [Concomitant]
     Active Substance: OXYCODONE
     Dosage: STRENGTH:4.48 MG AND 5 MG, MAX 5/DAY
     Dates: start: 20180918
  17. LOPERAMIDE [Concomitant]
     Active Substance: LOPERAMIDE
     Dosage: STRENGTH: 1.858 MG AND 2 MG, 1 CAPSULE AS REQUIRED, MAX 8 CAPSULES/DAY
     Dates: start: 20211124
  18. EMOVAT [Concomitant]
     Dosage: STRENGTH:0.5 1 APPLICATION
     Dates: start: 20180202
  19. FENURIL [Concomitant]
     Dosage: STRENGTH:40, 1 APPLICATION AS REQUIRED
     Dates: start: 20170613

REACTIONS (3)
  - Deprescribing error [Recovering/Resolving]
  - Anaemia [Recovering/Resolving]
  - Haemorrhage [Recovering/Resolving]

NARRATIVE: CASE EVENT DATE: 20220101
